FAERS Safety Report 11110507 (Version 6)
Quarter: 2015Q4

REPORT INFORMATION
  Report Type: Report from Study
  Country: US (occurrence: US)
  Receive Date: 20150513
  Receipt Date: 20151006
  Transmission Date: 20160304
  Serious: Yes (Other)
  Sender: FDA-Public Use
  Company Number: US-SA-2015SA026488

PATIENT
  Age: 48 Year
  Sex: Female

DRUGS (6)
  1. AUBAGIO [Suspect]
     Active Substance: TERIFLUNOMIDE
     Indication: MULTIPLE SCLEROSIS
     Route: 048
     Dates: start: 20150304, end: 20150329
  2. BETASERON [Concomitant]
     Active Substance: INTERFERON BETA-1B
     Indication: MULTIPLE SCLEROSIS
     Dates: start: 19990101, end: 20150117
  3. AUBAGIO [Suspect]
     Active Substance: TERIFLUNOMIDE
     Indication: MULTIPLE SCLEROSIS
     Dosage: DAILY DOSE : 7MG. ALTERNATING 14 MG
     Route: 048
     Dates: start: 20150330
  4. AUBAGIO [Suspect]
     Active Substance: TERIFLUNOMIDE
     Indication: MULTIPLE SCLEROSIS
     Route: 048
     Dates: start: 20150121
  5. AUBAGIO [Suspect]
     Active Substance: TERIFLUNOMIDE
     Indication: MULTIPLE SCLEROSIS
     Route: 048
  6. AUBAGIO [Suspect]
     Active Substance: TERIFLUNOMIDE
     Indication: MULTIPLE SCLEROSIS
     Route: 048
     Dates: start: 20150219, end: 20150224

REACTIONS (8)
  - Urinary tract infection [Recovering/Resolving]
  - Pollakiuria [Unknown]
  - Diarrhoea [Recovered/Resolved]
  - Rash macular [Recovered/Resolved]
  - Asthenia [Unknown]
  - Hot flush [Recovering/Resolving]
  - Amnesia [Recovering/Resolving]
  - Drug prescribing error [Unknown]

NARRATIVE: CASE EVENT DATE: 2015
